FAERS Safety Report 24010104 (Version 1)
Quarter: 2024Q2

REPORT INFORMATION
  Report Type: Spontaneous
  Country: PL (occurrence: PL)
  Receive Date: 20240625
  Receipt Date: 20240625
  Transmission Date: 20240715
  Serious: Yes (Other)
  Sender: FDA-Public Use
  Company Number: None

PATIENT
  Age: 45 Year
  Sex: Female
  Weight: 64 kg

DRUGS (3)
  1. DOCETAXEL [Suspect]
     Active Substance: DOCETAXEL\DOCETAXEL ANHYDROUS
     Indication: Breast cancer
     Route: 065
  2. PERTUZUMAB [Concomitant]
     Active Substance: PERTUZUMAB
     Indication: Breast cancer
     Route: 065
  3. HERCEPTIN [Concomitant]
     Active Substance: TRASTUZUMAB
     Indication: Breast cancer
     Route: 065

REACTIONS (3)
  - Chest discomfort [Recovered/Resolved]
  - Erythema [Recovered/Resolved]
  - Defaecation urgency [Recovered/Resolved]

NARRATIVE: CASE EVENT DATE: 20200130
